FAERS Safety Report 7646695-0 (Version None)
Quarter: 2011Q3

REPORT INFORMATION
  Report Type: 
  Country: None (occurrence: None)
  Receive Date: 20110801
  Receipt Date: 20110725
  Transmission Date: 20111222
  Serious: Yes (Other)
  Sender: FDA-Public Use
  Company Number: AU-CELGENEUS-008-21880-11053222

PATIENT
  Sex: Female
  Weight: 77.4 kg

DRUGS (7)
  1. DEXAMETHASONE [Concomitant]
     Dosage: 8 MILLIGRAM
     Route: 048
     Dates: start: 20110411, end: 20110411
  2. REVLIMID [Suspect]
     Indication: MULTIPLE MYELOMA
     Dosage: 5 MILLIGRAM
     Route: 048
     Dates: start: 20090212
  3. REVLIMID [Suspect]
     Route: 048
     Dates: start: 20110407, end: 20110427
  4. DEXAMETHASONE [Concomitant]
     Dosage: 16 MILLIGRAM
     Route: 048
     Dates: start: 20110409, end: 20110410
  5. ASPIRIN [Concomitant]
     Route: 048
     Dates: start: 20090212
  6. REVLIMID [Suspect]
     Dosage: 5 MILLIGRAM
     Route: 048
     Dates: start: 20091217
  7. DEXAMETHASONE [Concomitant]
     Indication: MULTIPLE MYELOMA
     Dosage: 20 MILLIGRAM
     Route: 048
     Dates: start: 20110407, end: 20110408

REACTIONS (1)
  - MALIGNANT MELANOMA [None]
